FAERS Safety Report 4630863-6 (Version None)
Quarter: 2005Q2

REPORT INFORMATION
  Report Type: 
  Country: None (occurrence: None)
  Receive Date: 20050406
  Receipt Date: 20050322
  Transmission Date: 20051028
  Serious: Yes (Hospitalization)
  Sender: FDA-Public Use
  Company Number: US014883

PATIENT
  Age: 20 Year
  Sex: Male
  Weight: 85 kg

DRUGS (4)
  1. GABITRIL [Suspect]
     Indication: BIPOLAR DISORDER
     Dosage: 2 MG BID ORAL
     Route: 048
     Dates: start: 20041201, end: 20050309
  2. ATIVAN [Concomitant]
  3. LITHIUM [Concomitant]
  4. SEROQUEL [Concomitant]

REACTIONS (10)
  - BRAIN OEDEMA [None]
  - COMA [None]
  - DEMYELINATION [None]
  - ENCEPHALOPATHY [None]
  - LEUKOENCEPHALOMYELITIS [None]
  - NERVOUS SYSTEM DISORDER [None]
  - STATUS EPILEPTICUS [None]
  - THERAPY NON-RESPONDER [None]
  - TOXICOLOGIC TEST ABNORMAL [None]
  - WEST NILE VIRAL INFECTION [None]
